FAERS Safety Report 14033750 (Version 1)
Quarter: 2017Q4

REPORT INFORMATION
  Report Type: Report from Study
  Country: US (occurrence: US)
  Receive Date: 20171003
  Receipt Date: 20171003
  Transmission Date: 20180321
  Serious: No
  Sender: FDA-Public Use
  Company Number: PHEH2017US030363

PATIENT
  Sex: Female

DRUGS (2)
  1. KISQALI [Suspect]
     Active Substance: RIBOCICLIB
     Indication: PRODUCT USED FOR UNKNOWN INDICATION
     Route: 065
  2. PERCOCET [Suspect]
     Active Substance: ACETAMINOPHEN\OXYCODONE HYDROCHLORIDE
     Indication: ARTHRALGIA
     Route: 065

REACTIONS (14)
  - Muscular weakness [Unknown]
  - Insomnia [Unknown]
  - Eye disorder [Unknown]
  - Nausea [Unknown]
  - Peripheral swelling [Unknown]
  - Fatigue [Unknown]
  - Musculoskeletal pain [Unknown]
  - Oropharyngeal pain [Unknown]
  - Vision blurred [Unknown]
  - Arthralgia [Recovering/Resolving]
  - Pain in extremity [Unknown]
  - Feeling hot [Unknown]
  - Dizziness [Unknown]
  - Vomiting [Unknown]
